FAERS Safety Report 9147586 (Version 3)
Quarter: 2013Q2

REPORT INFORMATION
  Report Type: Report from Study
  Country: AU (occurrence: AU)
  Receive Date: 20130307
  Receipt Date: 20130411
  Transmission Date: 20140414
  Serious: Yes (Hospitalization)
  Sender: FDA-Public Use
  Company Number: AU-JNJFOC-20130300466

PATIENT
  Age: 53 Year
  Sex: Male

DRUGS (8)
  1. STELARA [Suspect]
     Indication: PSORIASIS
     Route: 058
     Dates: start: 20120926
  2. STELARA [Suspect]
     Indication: PSORIASIS
     Route: 058
     Dates: start: 20120704
  3. STELARA [Suspect]
     Indication: PSORIASIS
     Route: 058
     Dates: start: 20120606
  4. STELARA [Suspect]
     Indication: PSORIASIS
     Route: 058
     Dates: start: 20121219
  5. RAMIPRIL [Concomitant]
  6. PRAVACHOL [Concomitant]
  7. METOPROLOL [Concomitant]
  8. ASPIRIN [Concomitant]

REACTIONS (4)
  - Arthritis bacterial [Recovered/Resolved]
  - Staphylococcal infection [Recovered/Resolved]
  - Gout [Unknown]
  - Joint swelling [Unknown]
